FAERS Safety Report 13042412 (Version 1)
Quarter: 2016Q4

REPORT INFORMATION
  Report Type: Spontaneous
  Country: FR (occurrence: FR)
  Receive Date: 20161219
  Receipt Date: 20161219
  Transmission Date: 20170207
  Serious: Yes (Hospitalization, Other)
  Sender: FDA-Public Use
  Company Number: FR-BRISTOL-MYERS SQUIBB COMPANY-BMS-2016-105078

PATIENT
  Age: 86 Year
  Sex: Female

DRUGS (1)
  1. COUMADINE [Suspect]
     Active Substance: WARFARIN SODIUM
     Indication: ATRIAL FIBRILLATION
     Dosage: 6.5 MG, QD
     Route: 048
     Dates: end: 201611

REACTIONS (6)
  - International normalised ratio increased [Recovered/Resolved]
  - Hypotension [Recovered/Resolved]
  - Haematuria [Recovered/Resolved]
  - Spontaneous haematoma [Recovering/Resolving]
  - Haemorrhagic anaemia [Recovered/Resolved]
  - Transfusion [Unknown]

NARRATIVE: CASE EVENT DATE: 20161018
